FAERS Safety Report 9424810 (Version 1)
Quarter: 2013Q3

REPORT INFORMATION
  Report Type: Spontaneous
  Country: FR (occurrence: FR)
  Receive Date: 20130729
  Receipt Date: 20130729
  Transmission Date: 20140515
  Serious: Yes (Hospitalization)
  Sender: FDA-Public Use
  Company Number: FR-B.I. PHARMACEUTICALS,INC./RIDGEFIELD-2013-FF-01920FF

PATIENT
  Age: 95 Year
  Sex: Male
  Weight: 50 kg

DRUGS (3)
  1. PRADAXA [Suspect]
     Dosage: 220 MG
     Route: 048
     Dates: start: 201209
  2. NITRIDERM [Concomitant]
     Dosage: 10 MG
     Route: 062
  3. LASILIX FAIBLE [Concomitant]
     Dosage: 40 MG IN THE MORNING, 20 MG IN THE EVENING
     Route: 048

REACTIONS (3)
  - Epistaxis [Recovered/Resolved]
  - Tachycardia [Recovered/Resolved]
  - Hypertensive crisis [Recovered/Resolved]
